FAERS Safety Report 15597236 (Version 1)
Quarter: 2018Q4

REPORT INFORMATION
  Report Type: Spontaneous
  Country: US (occurrence: US)
  Receive Date: 20181108
  Receipt Date: 20181108
  Transmission Date: 20190205
  Serious: Yes (Other)
  Sender: FDA-Public Use
  Company Number: PHHY2018US144050

PATIENT
  Age: 55 Year
  Sex: Female

DRUGS (1)
  1. ATORVASTATIN [Suspect]
     Active Substance: ATORVASTATIN
     Indication: CORONARY ARTERY DISEASE
     Dosage: 0 MG, QD
     Route: 065

REACTIONS (10)
  - Dermatitis atopic [Recovered/Resolved]
  - Skin lesion [Recovered/Resolved]
  - Myositis [Recovered/Resolved]
  - Disease progression [Recovered/Resolved]
  - Rash [Recovered/Resolved]
  - Rash erythematous [Recovered/Resolved]
  - Muscular weakness [Recovered/Resolved]
  - Condition aggravated [Recovered/Resolved]
  - Dermatomyositis [Recovered/Resolved]
  - Dermatitis [Recovered/Resolved]
